FAERS Safety Report 6404098-0 (Version None)
Quarter: 2009Q4

REPORT INFORMATION
  Report Type: 
  Country: None (occurrence: None)
  Receive Date: 20091016
  Receipt Date: 20090901
  Transmission Date: 20100525
  Serious: No
  Sender: FDA-Public Use
  Company Number: US-ALEXION-A200900711

PATIENT
  Sex: Female

DRUGS (10)
  1. SOLIRIS [Suspect]
     Indication: PAROXYSMAL NOCTURNAL HAEMOGLOBINURIA
     Dosage: 600 MG, QW
     Route: 042
     Dates: start: 20090305, end: 20090326
  2. SOLIRIS [Suspect]
     Dosage: 900 MG, Q2W
     Route: 042
     Dates: start: 20090402
  3. PREDNISONE [Concomitant]
     Indication: PAROXYSMAL NOCTURNAL HAEMOGLOBINURIA
     Dosage: 5 MG, QD
     Route: 048
  4. PRILOSEC [Concomitant]
     Indication: GASTROOESOPHAGEAL REFLUX DISEASE
     Dosage: UNK
     Route: 048
  5. LISINOPRIL [Concomitant]
     Indication: HYPERTENSION
     Dosage: 10 MG, QD
     Route: 048
  6. XANAX [Concomitant]
     Indication: NERVOUSNESS
     Dosage: 0.5 MG, UNK
     Route: 048
  7. FOLIC ACID [Concomitant]
     Indication: PAROXYSMAL NOCTURNAL HAEMOGLOBINURIA
     Dosage: UNK
     Route: 048
  8. LORCET-HD [Concomitant]
     Indication: PAIN
     Dosage: 5/500 MG, PRN
     Route: 048
  9. GLUCOTROL [Concomitant]
     Dosage: UNK
     Route: 048
  10. VITAMIN A [Concomitant]
     Dosage: 50000 UT, TWICE WEEKLY

REACTIONS (4)
  - DYSPNOEA [None]
  - FATIGUE [None]
  - JOINT SWELLING [None]
  - TINNITUS [None]
